FAERS Safety Report 11178965 (Version 2)
Quarter: 2015Q3

REPORT INFORMATION
  Report Type: Spontaneous
  Country: US (occurrence: None)
  Receive Date: 20150601
  Receipt Date: 20150803
  Transmission Date: 20151125
  Serious: Yes (Other)
  Sender: FDA-Public Use
  Company Number: BTG00251

PATIENT
  Age: 66 Year
  Sex: Female

DRUGS (2)
  1. DIGIFAB [Suspect]
     Active Substance: OVINE DIGOXIN IMMUNE FAB
     Indication: TOXICITY TO VARIOUS AGENTS
     Dosage: 3 DF, SINGLE (3 VIALS)
  2. DIGOXIN (BETA-ACETYLDIGOXIN) [Suspect]
     Active Substance: .BETA.-ACETYLDIGOXIN
     Indication: ATRIAL FIBRILLATION

REACTIONS (10)
  - Lower gastrointestinal haemorrhage [None]
  - Hypotension [None]
  - Acute kidney injury [None]
  - Ventricular fibrillation [None]
  - Cardiac arrest [None]
  - Continuous haemodiafiltration [None]
  - Toxicity to various agents [None]
  - Renal failure [None]
  - Drug ineffective [None]
  - Bradycardia [None]
